FAERS Safety Report 13586338 (Version 1)
Quarter: 2017Q2

REPORT INFORMATION
  Report Type: Spontaneous
  Country: JP (occurrence: JP)
  Receive Date: 20170526
  Receipt Date: 20170526
  Transmission Date: 20170830
  Serious: Yes (Other)
  Sender: FDA-Public Use
  Company Number: JP-ELI_LILLY_AND_COMPANY-JP201705010174

PATIENT
  Age: 85 Year
  Sex: Female
  Weight: 41 kg

DRUGS (4)
  1. ESANBUTOL                          /00022301/ [Concomitant]
     Indication: INTESTINAL TUBERCULOSIS
     Dosage: 500 MG, DAILY
     Route: 065
  2. CRAVIT [Suspect]
     Active Substance: LEVOFLOXACIN
     Indication: INTESTINAL TUBERCULOSIS
     Dosage: 250 MG, DAILY
     Route: 065
  3. PRASUGREL HYDROCHLORIDE [Suspect]
     Active Substance: PRASUGREL HYDROCHLORIDE
     Indication: PRODUCT USED FOR UNKNOWN INDICATION
     Dosage: 3.75 MG, DAILY
     Route: 065
  4. ISONARIF [Suspect]
     Active Substance: ISONIAZID\RIFAMPIN
     Indication: INTESTINAL TUBERCULOSIS
     Dosage: 200 MG, DAILY
     Route: 065

REACTIONS (1)
  - Renal impairment [Not Recovered/Not Resolved]
